FAERS Safety Report 13216222 (Version 3)
Quarter: 2017Q1

REPORT INFORMATION
  Report Type: Report from Study
  Country: None (occurrence: AR)
  Receive Date: 20170209
  Receipt Date: 20170227
  Transmission Date: 20170428
  Serious: Yes (Hospitalization, Other)
  Sender: FDA-Public Use
  Company Number: AR-ABBVIE-17K-007-1868095-00

PATIENT
  Sex: Female

DRUGS (1)
  1. HUMIRA [Suspect]
     Active Substance: ADALIMUMAB
     Indication: CROHN^S DISEASE
     Route: 058
     Dates: start: 20121229

REACTIONS (6)
  - Intestinal obstruction [Recovering/Resolving]
  - Procedural pain [Unknown]
  - Localised infection [Unknown]
  - Cholelithiasis [Unknown]
  - Post procedural diarrhoea [Unknown]
  - Ileal ulcer [Unknown]

NARRATIVE: CASE EVENT DATE: 2016
